FAERS Safety Report 7334461-5 (Version None)
Quarter: 2011Q1

REPORT INFORMATION
  Report Type: 
  Country: None (occurrence: None)
  Receive Date: 20110307
  Receipt Date: 20110222
  Transmission Date: 20110831
  Serious: Yes (Death, Other)
  Sender: FDA-Public Use
  Company Number: US-CELGENEUS-163-21880-11022919

PATIENT
  Age: 70 Year
  Sex: Female

DRUGS (3)
  1. REVLIMID [Suspect]
     Route: 048
  2. ASPIRIN [Concomitant]
     Dosage: 81 MILLIGRAM
     Route: 065
  3. CLOPIDOGREL [Concomitant]
     Dosage: 81 MILLIGRAM
     Route: 065

REACTIONS (3)
  - CARDIOGENIC SHOCK [None]
  - THROMBOSIS IN DEVICE [None]
  - MULTI-ORGAN FAILURE [None]
